FAERS Safety Report 17009718 (Version 5)
Quarter: 2020Q3

REPORT INFORMATION
  Report Type: Spontaneous
  Country: CA (occurrence: CA)
  Receive Date: 20191108
  Receipt Date: 20200827
  Transmission Date: 20201102
  Serious: Yes (Other)
  Sender: FDA-Public Use
  Company Number: CA-PFIZER INC-2019401996

PATIENT
  Age: 60 Year
  Sex: Female

DRUGS (4)
  1. XELJANZ [Suspect]
     Active Substance: TOFACITINIB CITRATE
     Dosage: 10 MG, 1X/DAY
     Route: 048
     Dates: start: 2019, end: 202001
  2. XELJANZ [Suspect]
     Active Substance: TOFACITINIB CITRATE
     Dosage: 10 MG, BID (2X/DAY)
     Route: 048
     Dates: start: 202001, end: 2020
  3. XELJANZ [Suspect]
     Active Substance: TOFACITINIB CITRATE
     Dosage: UNK
     Route: 048
     Dates: start: 2020
  4. XELJANZ [Suspect]
     Active Substance: TOFACITINIB CITRATE
     Indication: COLITIS ULCERATIVE
     Dosage: 10 MG, TWICE DAILY
     Route: 048
     Dates: start: 20190904, end: 2019

REACTIONS (12)
  - Enteritis [Unknown]
  - Asthenia [Unknown]
  - Constipation [Recovering/Resolving]
  - Glossodynia [Unknown]
  - Muscle spasms [Unknown]
  - Dyspepsia [Unknown]
  - Weight increased [Unknown]
  - Intentional product use issue [Unknown]
  - Flatulence [Unknown]
  - Dry mouth [Unknown]
  - Bowel movement irregularity [Unknown]
  - Appetite disorder [Unknown]

NARRATIVE: CASE EVENT DATE: 2019
